FAERS Safety Report 7412372-4 (Version None)
Quarter: 2011Q2

REPORT INFORMATION
  Report Type: 
  Country: None (occurrence: None)
  Receive Date: 20110408
  Receipt Date: 20110408
  Transmission Date: 20111010
  Serious: No
  Sender: FDA-Public Use
  Company Number: None

PATIENT
  Age: 62 Year
  Sex: Male
  Weight: 76.2043 kg

DRUGS (1)
  1. SEPTOCAINE [Suspect]
     Indication: PREMEDICATION
     Dosage: ONE TIME DENTAL
     Route: 004
     Dates: start: 20100513, end: 20100513

REACTIONS (5)
  - ATROPHY [None]
  - ANXIETY [None]
  - HYPOAESTHESIA [None]
  - PAIN [None]
  - ABASIA [None]
